FAERS Safety Report 9861644 (Version 1)
Quarter: 2014Q1

REPORT INFORMATION
  Report Type: Spontaneous
  Country: US (occurrence: US)
  Receive Date: 20140203
  Receipt Date: 20140203
  Transmission Date: 20141002
  Serious: Yes (Other)
  Sender: FDA-Public Use
  Company Number: US-BRISTOL-MYERS SQUIBB COMPANY-20079778

PATIENT
  Age: 49 Year
  Sex: Male

DRUGS (3)
  1. ABILIFY [Suspect]
     Indication: SCHIZOPHRENIA
     Dates: start: 2008
  2. ABILIFY [Suspect]
     Indication: BIPOLAR DISORDER
     Dates: start: 2008
  3. ALPRAZOLAM [Concomitant]

REACTIONS (6)
  - Road traffic accident [Unknown]
  - Loss of consciousness [Unknown]
  - Amnesia [Unknown]
  - Hypertension [Unknown]
  - Dizziness [Unknown]
  - Hypersomnia [Unknown]
